FAERS Safety Report 8598076-3 (Version None)
Quarter: 2012Q3

REPORT INFORMATION
  Report Type: 
  Country: None (occurrence: None)
  Receive Date: 20120816
  Receipt Date: 20120806
  Transmission Date: 20120928
  Serious: Yes (Hospitalization, Other)
  Sender: FDA-Public Use
  Company Number: GB-CELGENEUS-167-50794-12030480

PATIENT
  Sex: Male

DRUGS (7)
  1. OMEPRAZOLE [Concomitant]
     Route: 065
     Dates: end: 20120301
  2. ACYCLOVIR [Concomitant]
     Route: 065
  3. POSACONAZOLE [Concomitant]
     Route: 065
  4. VIDAZA [Suspect]
     Route: 058
     Dates: start: 20110718, end: 20110728
  5. VIDAZA [Suspect]
     Route: 058
     Dates: start: 20110824, end: 20110831
  6. VIDAZA [Suspect]
     Route: 058
     Dates: start: 20111017, end: 20120127
  7. RANITIDINE [Concomitant]
     Route: 065
     Dates: start: 20120301

REACTIONS (1)
  - HEPATITIS B [None]
